FAERS Safety Report 9766438 (Version 1)
Quarter: 2013Q4

REPORT INFORMATION
  Report Type: Report from Study
  Country: GB (occurrence: GB)
  Receive Date: 20131217
  Receipt Date: 20131217
  Transmission Date: 20140711
  Serious: Yes (Hospitalization)
  Sender: FDA-Public Use
  Company Number: GB-ELI_LILLY_AND_COMPANY-GB201312001002

PATIENT
  Age: 72 Year
  Sex: Female
  Weight: 66.4 kg

DRUGS (7)
  1. PLACEBO [Suspect]
     Indication: MUSCLE ATROPHY
     Dosage: 1 DF, OTHER
     Route: 042
     Dates: start: 20131114
  2. GEMCITABINE HYDROCHLORIDE [Suspect]
     Indication: MUSCLE ATROPHY
     Dosage: 1700 MG/M2, OTHER
     Route: 042
     Dates: start: 20131114
  3. CO-CODAMOL [Concomitant]
     Indication: ANALGESIC THERAPY
     Dosage: UNK
     Dates: start: 2003
  4. ATORVASTATIN [Concomitant]
     Dosage: UNK
     Dates: start: 2008
  5. AMLODIPINE [Concomitant]
     Dosage: UNK
     Dates: start: 2003
  6. LANSOPRAZOLE [Concomitant]
     Dosage: UNK
     Dates: start: 2003
  7. LOPERAMIDE [Concomitant]
     Dosage: UNK
     Dates: start: 20131113

REACTIONS (1)
  - Neutropenic sepsis [Not Recovered/Not Resolved]
